FAERS Safety Report 7829248-0 (Version None)
Quarter: 2011Q4

REPORT INFORMATION
  Report Type: 
  Country: None (occurrence: None)
  Receive Date: 20111020
  Receipt Date: 20111006
  Transmission Date: 20120403
  Serious: Yes (Hospitalization)
  Sender: FDA-Public Use
  Company Number: US-ALLERGAN-1004499US

PATIENT
  Age: 3 Year
  Sex: Male
  Weight: 10 kg

DRUGS (4)
  1. PHENOL [Suspect]
     Indication: NEUROLYSIS
     Dosage: 2 ML, SINGLE
     Route: 030
     Dates: start: 20100329, end: 20100329
  2. VERSED [Concomitant]
     Indication: SEDATION
     Dosage: 0.3 MG/KG
     Route: 054
     Dates: start: 20100329, end: 20100329
  3. BOTULINUM TOXIN TYPE A [Suspect]
     Indication: MUSCLE SPASTICITY
     Dosage: 200 UNITS, SINGLE
     Route: 030
     Dates: start: 20100329, end: 20100329
  4. BOTULINUM TOXIN TYPE A [Suspect]
     Indication: LEUKODYSTROPHY

REACTIONS (11)
  - HYPOPHAGIA [None]
  - HYPOTONIA [None]
  - ASTHENIA [None]
  - BOTULISM [None]
  - OEDEMA PERIPHERAL [None]
  - LYMPHOEDEMA [None]
  - EYELID PTOSIS [None]
  - DEPRESSED LEVEL OF CONSCIOUSNESS [None]
  - RESPIRATORY FAILURE [None]
  - HYPOGLYCAEMIA [None]
  - HYPOREFLEXIA [None]
